FAERS Safety Report 18549739 (Version 1)
Quarter: 2020Q4

REPORT INFORMATION
  Report Type: Spontaneous
  Country: OM (occurrence: OM)
  Receive Date: 20201126
  Receipt Date: 20201126
  Transmission Date: 20210114
  Serious: Yes (Life-Threatening, Hospitalization, Other)
  Sender: FDA-Public Use
  Company Number: OM-SCIEGEN-2020SCILIT00394

PATIENT
  Age: 3 Year
  Sex: Female

DRUGS (6)
  1. METFORMIN HYDROCHLORIDETABLETS [Suspect]
     Active Substance: METFORMIN HYDROCHLORIDE
     Route: 065
  2. PROPRANOLOL [Suspect]
     Active Substance: PROPRANOLOL HYDROCHLORIDE
     Indication: PRODUCT USED FOR UNKNOWN INDICATION
     Route: 065
  3. DOPAMINE [Interacting]
     Active Substance: DOPAMINE HYDROCHLORIDE
     Indication: HYPOTENSION
     Dosage: UNKNOWN
     Route: 065
  4. NOREPINEPHRINE INFUSION [Interacting]
     Active Substance: NOREPINEPHRINE
     Indication: HYPOTENSION
     Dosage: UNKNOWN
     Route: 065
  5. UNSPECIFIED DIURETICS [Concomitant]
     Indication: PRODUCT USED FOR UNKNOWN INDICATION
     Route: 065
  6. METFORMIN HYDROCHLORIDETABLETS [Suspect]
     Active Substance: METFORMIN HYDROCHLORIDE
     Indication: NERVOUS SYSTEM DISORDER
     Dosage: UNKNOWN
     Route: 065

REACTIONS (7)
  - Hyperkalaemia [Recovered/Resolved]
  - Product use in unapproved indication [None]
  - Hypotension [Recovered/Resolved]
  - Lethargy [Recovered/Resolved]
  - Lactic acidosis [Recovered/Resolved]
  - Hyperglycaemia [Recovered/Resolved]
  - Arrhythmia [Recovered/Resolved]
